FAERS Safety Report 11156005 (Version 1)
Quarter: 2015Q2

REPORT INFORMATION
  Report Type: Spontaneous
  Country: US (occurrence: US)
  Receive Date: 20150602
  Receipt Date: 20150602
  Transmission Date: 20150821
  Serious: Yes (Death)
  Sender: FDA-Public Use
  Company Number: US-CELGENE-USA-2015055492

PATIENT

DRUGS (4)
  1. CARBOPLATIN. [Suspect]
     Active Substance: CARBOPLATIN
     Indication: DESMOPLASTIC SMALL ROUND CELL TUMOUR
     Route: 058
  2. THIOTEPA. [Suspect]
     Active Substance: THIOTEPA
     Indication: DESMOPLASTIC SMALL ROUND CELL TUMOUR
     Route: 041
  3. THALOMID [Suspect]
     Active Substance: THALIDOMIDE
     Indication: DESMOPLASTIC SMALL ROUND CELL TUMOUR
     Route: 048
  4. TOPOTECAN [Suspect]
     Active Substance: TOPOTECAN\TOPOTECAN HYDROCHLORIDE
     Indication: DESMOPLASTIC SMALL ROUND CELL TUMOUR
     Route: 041

REACTIONS (2)
  - Off label use [Unknown]
  - Desmoplastic small round cell tumour [Fatal]
